FAERS Safety Report 5249568-6 (Version None)
Quarter: 2007Q1

REPORT INFORMATION
  Report Type: 
  Country: None (occurrence: None)
  Receive Date: 20070228
  Receipt Date: 20060607
  Transmission Date: 20070707
  Serious: No
  Sender: FDA-Public Use
  Company Number: US-GLAXOSMITHKLINE-A0596769A

PATIENT
  Age: 52 Year
  Sex: Male

DRUGS (2)
  1. IMITREX [Suspect]
     Indication: MIGRAINE
     Dosage: 6MG AS REQUIRED
     Route: 058
     Dates: start: 20060301
  2. NO CONCURRENT MEDICATION [Concomitant]

REACTIONS (3)
  - EUPHORIC MOOD [None]
  - HYPOAESTHESIA [None]
  - TREMOR [None]
